FAERS Safety Report 13898763 (Version 4)
Quarter: 2017Q4

REPORT INFORMATION
  Report Type: Report from Study
  Country: US (occurrence: US)
  Receive Date: 20170823
  Receipt Date: 20171110
  Transmission Date: 20180320
  Serious: Yes (Death, Hospitalization)
  Sender: FDA-Public Use
  Company Number: US-ACTELION-A-NJ2015-119392

PATIENT
  Age: 45 Year
  Sex: Female
  Weight: 81.63 kg

DRUGS (3)
  1. VELETRI [Suspect]
     Active Substance: EPOPROSTENOL
     Dosage: 26.6 NG/KG, PER MIN
     Route: 042
  2. VELETRI [Suspect]
     Active Substance: EPOPROSTENOL
     Indication: PULMONARY ARTERIAL HYPERTENSION
     Dosage: 10 NG/KG, PER MIN
     Route: 042
     Dates: start: 20150526
  3. OPSUMIT [Suspect]
     Active Substance: MACITENTAN
     Indication: PULMONARY ARTERIAL HYPERTENSION
     Dosage: 10 MG, QD
     Route: 048
     Dates: start: 20150605

REACTIONS (22)
  - Headache [Unknown]
  - Pain in extremity [Unknown]
  - Application site pruritus [Recovered/Resolved]
  - Weight decreased [Unknown]
  - Device occlusion [Unknown]
  - Device alarm issue [Unknown]
  - Confusional state [Unknown]
  - Catheter management [Unknown]
  - Pain in jaw [Unknown]
  - Catheter site haemorrhage [Unknown]
  - Complication associated with device [Unknown]
  - Dyspnoea [Unknown]
  - Drug dose omission [Unknown]
  - Nausea [Unknown]
  - Malaise [Unknown]
  - Death [Fatal]
  - Endotracheal intubation [Unknown]
  - Abdominal pain upper [Unknown]
  - Gastroenteritis viral [Unknown]
  - Device infusion issue [Unknown]
  - Diarrhoea [Unknown]
  - Vomiting [Unknown]

NARRATIVE: CASE EVENT DATE: 20170813
